FAERS Safety Report 12475364 (Version 5)
Quarter: 2016Q4

REPORT INFORMATION
  Report Type: Report from Study
  Country: BR (occurrence: BR)
  Receive Date: 20160617
  Receipt Date: 20161004
  Transmission Date: 20170207
  Serious: Yes (Other)
  Sender: FDA-Public Use
  Company Number: BR-JNJFOC-20160609787

PATIENT
  Sex: Female
  Weight: 67 kg

DRUGS (2)
  1. IBUPROFEN. [Concomitant]
     Active Substance: IBUPROFEN
     Route: 065
  2. SIMPONI [Suspect]
     Active Substance: GOLIMUMAB
     Indication: RHEUMATOID ARTHRITIS
     Route: 058
     Dates: start: 20131218

REACTIONS (10)
  - Decreased appetite [Unknown]
  - Headache [Unknown]
  - Dizziness [Not Recovered/Not Resolved]
  - Pyrexia [Unknown]
  - Joint injury [Unknown]
  - Pain [Unknown]
  - Sinusitis [Unknown]
  - Nerve injury [Unknown]
  - Influenza [Unknown]
  - Nervousness [Unknown]

NARRATIVE: CASE EVENT DATE: 2016
